FAERS Safety Report 5584515-9 (Version None)
Quarter: 2008Q1

REPORT INFORMATION
  Report Type: 
  Country: None (occurrence: None)
  Receive Date: 20080108
  Receipt Date: 20080102
  Transmission Date: 20080703
  Serious: Yes (Other)
  Sender: FDA-Public Use
  Company Number: US-ELI_LILLY_AND_COMPANY-US200801000224

PATIENT
  Sex: Female
  Weight: 120.18 kg

DRUGS (2)
  1. BYETTA [Suspect]
     Dosage: 5 UG, 2/D
     Route: 058
     Dates: start: 20071001, end: 20071101
  2. BYETTA [Suspect]
     Dosage: 10 UG, 2/D
     Route: 058
     Dates: start: 20071101

REACTIONS (6)
  - BLOOD GLUCOSE INCREASED [None]
  - DECREASED APPETITE [None]
  - INTERVERTEBRAL DISC PROTRUSION [None]
  - MOBILITY DECREASED [None]
  - NAUSEA [None]
  - WEIGHT DECREASED [None]
